FAERS Safety Report 8100145 (Version 5)
Quarter: 2012Q4

REPORT INFORMATION
  Report Type: 
  Country: US (occurrence: US)
  Receive Date: 20110822
  Receipt Date: 20121227
  Transmission Date: 20130627
  Serious: Yes (Hospitalization, Congenital Anomaly)
  Sender: FDA-Public Use
  Company Number: US-GLAXOSMITHKLINE-A0814859A

PATIENT
  Age: 0 Year
  Sex: Male

DRUGS (5)
  1. PAXIL [Suspect]
     Indication: DEPRESSION
     Dosage: 35MG Per day
     Route: 064
     Dates: start: 2000, end: 20051121
  2. PAXIL CR [Suspect]
     Indication: DEPRESSION
     Route: 064
     Dates: start: 20020820
  3. PRENATAL VITAMINS [Concomitant]
     Route: 064
  4. PHENERGAN [Concomitant]
     Dosage: 25MG At night
     Route: 064
  5. LORAZEPAM [Concomitant]
     Dates: start: 200208

REACTIONS (23)
  - Ventricular septal defect [Not Recovered/Not Resolved]
  - Cloacal exstrophy [Unknown]
  - Anal atresia [Unknown]
  - Renal dysplasia [Unknown]
  - Congenital bladder anomaly [Unknown]
  - Intestinal malrotation [Unknown]
  - Multiple congenital abnormalities [Unknown]
  - Congenital anomaly [Unknown]
  - Hypospadias [Unknown]
  - Pulmonary artery stenosis congenital [Unknown]
  - Ventricular septal defect [Unknown]
  - Patent ductus arteriosus [Unknown]
  - Atrial septal defect [Unknown]
  - Supraventricular tachycardia [Unknown]
  - Scrotal disorder [Unknown]
  - Penis disorder [Unknown]
  - Cardiac murmur [Unknown]
  - Adjustment disorder [Unknown]
  - Anxiety [Unknown]
  - Depressed mood [Unknown]
  - Attention deficit/hyperactivity disorder [Unknown]
  - Vesicoureteric reflux [Unknown]
  - Foetal exposure during pregnancy [Unknown]
